FAERS Safety Report 7282617-2 (Version None)
Quarter: 2011Q1

REPORT INFORMATION
  Report Type: 
  Country: None (occurrence: None)
  Receive Date: 20110209
  Receipt Date: 20110201
  Transmission Date: 20110831
  Serious: Yes (Death)
  Sender: FDA-Public Use
  Company Number: IL-NOVOPROD-322731

PATIENT
  Age: 72 Year
  Sex: Male
  Weight: 107 kg

DRUGS (1)
  1. NOVOSEVEN [Suspect]
     Indication: HAEMORRHAGE
     Dosage: 9.6 MG, UNK
     Route: 042
     Dates: start: 20101124

REACTIONS (1)
  - DEATH [None]
